FAERS Safety Report 12346465 (Version 1)
Quarter: 2016Q2

REPORT INFORMATION
  Report Type: Report from Study
  Country: FR (occurrence: FR)
  Receive Date: 20160509
  Receipt Date: 20160509
  Transmission Date: 20160815
  Serious: Yes (Other)
  Sender: FDA-Public Use
  Company Number: FR-ROCHE-1593412

PATIENT

DRUGS (1)
  1. CAPECITABINE. [Suspect]
     Active Substance: CAPECITABINE
     Indication: PANCREATIC CARCINOMA METASTATIC
     Dosage: INITIAL MEDIAN DOSE: 2000MG/M2
     Route: 048

REACTIONS (8)
  - Palmar-plantar erythrodysaesthesia syndrome [Unknown]
  - Vomiting [Unknown]
  - Nausea [Unknown]
  - Mucosal inflammation [Unknown]
  - Asthenia [Unknown]
  - Myalgia [Unknown]
  - Decreased appetite [Unknown]
  - Diarrhoea [Unknown]
